FAERS Safety Report 9863350 (Version 1)
Quarter: 2014Q1

REPORT INFORMATION
  Report Type: Spontaneous
  Country: US (occurrence: US)
  Receive Date: 20140203
  Receipt Date: 20140203
  Transmission Date: 20141002
  Serious: Yes (Other)
  Sender: FDA-Public Use
  Company Number: US-GILEAD-2014-0093559

PATIENT
  Sex: Female

DRUGS (2)
  1. LETAIRIS [Suspect]
     Indication: PRODUCT USED FOR UNKNOWN INDICATION
     Dosage: 5 MG, QD
     Route: 065
     Dates: start: 20130423
  2. ADCIRCA [Concomitant]

REACTIONS (5)
  - Pulmonary oedema [Recovering/Resolving]
  - Unevaluable event [Recovering/Resolving]
  - Mitral valve disease [Unknown]
  - Left ventricular end-diastolic pressure increased [Unknown]
  - Dyspnoea [Recovering/Resolving]
